FAERS Safety Report 23652287 (Version 2)
Quarter: 2024Q1

REPORT INFORMATION
  Report Type: Other
  Country: US (occurrence: None)
  Receive Date: 20240320
  Receipt Date: 20240322
  Transmission Date: 20240409
  Serious: No
  Sender: FDA-Public Use
  Company Number: US-ROCHE-3529805

PATIENT
  Age: 54 Year
  Sex: Female

DRUGS (5)
  1. OCREVUS [Suspect]
     Active Substance: OCRELIZUMAB
     Indication: Relapsing multiple sclerosis
     Dosage: ON 18/OCT/2023, SHE RECEIVED MOST RECENT INFUSION OF OCRELIZUMAB.
     Route: 042
     Dates: start: 20210407
  2. MYRBETRIQ [Concomitant]
     Active Substance: MIRABEGRON
  3. LANTUS [Concomitant]
     Active Substance: INSULIN GLARGINE
  4. TOPIRAMATE [Concomitant]
     Active Substance: TOPIRAMATE
  5. BACLOFEN [Concomitant]
     Active Substance: BACLOFEN

REACTIONS (3)
  - Influenza [Unknown]
  - Nasopharyngitis [Unknown]
  - Fall [Unknown]

NARRATIVE: CASE EVENT DATE: 20231016
